FAERS Safety Report 22606222 (Version 1)
Quarter: 2023Q2

REPORT INFORMATION
  Report Type: Spontaneous
  Country: US (occurrence: None)
  Receive Date: 20230614
  Receipt Date: 20230614
  Transmission Date: 20230721
  Serious: Yes (Hospitalization, Congenital Anomaly)
  Sender: FDA-Public Use
  Company Number: None

PATIENT
  Age: 11 Year
  Sex: Female
  Weight: 7 kg

DRUGS (3)
  1. TREPROSTINIL [Suspect]
     Active Substance: TREPROSTINIL
     Indication: Pulmonary hypertension
     Dosage: OTHER FREQUENCY : CONTINOUS;?OTHER ROUTE : SUBCUTANEOUS INFUSION;?
     Route: 050
     Dates: start: 20230429, end: 20230609
  2. BOSENTAN [Suspect]
     Active Substance: BOSENTAN
  3. SILDENAFIL [Suspect]
     Active Substance: SILDENAFIL

REACTIONS (2)
  - Therapy cessation [None]
  - Disease recurrence [None]

NARRATIVE: CASE EVENT DATE: 20230609
